FAERS Safety Report 7133605-8 (Version None)
Quarter: 2010Q4

REPORT INFORMATION
  Report Type: 
  Country: None (occurrence: None)
  Receive Date: 20101202
  Receipt Date: 20101126
  Transmission Date: 20110411
  Serious: Yes (Other)
  Sender: FDA-Public Use
  Company Number: ES-MERCK-1011ESP00032

PATIENT
  Age: 62 Year
  Sex: Male
  Weight: 83 kg

DRUGS (3)
  1. JANUMET [Suspect]
     Indication: TYPE 2 DIABETES MELLITUS
     Route: 048
     Dates: start: 20091201, end: 20101101
  2. HYDROCHLOROTHIAZIDE AND VALSARTAN [Concomitant]
     Indication: HYPERTENSION
     Route: 065
     Dates: start: 20080101, end: 20101101
  3. MOXONIDINE [Concomitant]
     Indication: HYPERTENSION
     Route: 065
     Dates: start: 20090101, end: 20101101

REACTIONS (1)
  - PANCREATITIS [None]
